FAERS Safety Report 8299091-X (Version None)
Quarter: 2012Q2

REPORT INFORMATION
  Report Type: 
  Country: None (occurrence: None)
  Receive Date: 20120416
  Receipt Date: 20120416
  Transmission Date: 20120825
  Serious: No
  Sender: FDA-Public Use
  Company Number: None

PATIENT
  Age: 51 Year
  Sex: Female

DRUGS (9)
  1. VICODIN [Concomitant]
  2. IBUPROFEN [Concomitant]
  3. PERCOCET [Concomitant]
  4. ISONIAZID [Suspect]
     Dates: start: 20100401, end: 20100819
  5. GOLYTELY [Concomitant]
  6. DOCUSATE [Concomitant]
  7. CODEINE [Concomitant]
  8. PYRIDOXINE HCL [Concomitant]
  9. MAXZIDE [Concomitant]

REACTIONS (12)
  - DECREASED APPETITE [None]
  - ABDOMINAL DISCOMFORT [None]
  - MEMORY IMPAIRMENT [None]
  - CONSTIPATION [None]
  - WEIGHT DECREASED [None]
  - OCULAR ICTERUS [None]
  - LIVER INJURY [None]
  - PAROSMIA [None]
  - BRADYPHRENIA [None]
  - HEPATOTOXICITY [None]
  - NAUSEA [None]
  - LIVER FUNCTION TEST ABNORMAL [None]
